FAERS Safety Report 5619026-5 (Version None)
Quarter: 2008Q1

REPORT INFORMATION
  Report Type: 
  Country: None (occurrence: None)
  Receive Date: 20080207
  Receipt Date: 20080110
  Transmission Date: 20080703
  Serious: No
  Sender: FDA-Public Use
  Company Number: US-BOEHRINGER INGELHEIM GMBH, GERMANY-2007-BP-25249BP

PATIENT
  Age: 65 Year
  Sex: Male

DRUGS (3)
  1. FLOMAX [Suspect]
     Indication: CARDIOVASCULAR DISORDER
     Route: 048
     Dates: start: 20070701
  2. FLOMAX [Suspect]
     Indication: POLLAKIURIA
     Route: 048
  3. ADVIL [Concomitant]

REACTIONS (2)
  - CHEST DISCOMFORT [None]
  - MASTOID DISORDER [None]
